FAERS Safety Report 23768300 (Version 1)
Quarter: 2024Q2

REPORT INFORMATION
  Report Type: Spontaneous
  Country: US (occurrence: None)
  Receive Date: 20240419
  Receipt Date: 20240419
  Transmission Date: 20240716
  Serious: Yes (Other)
  Sender: FDA-Public Use
  Company Number: None

PATIENT
  Age: 41 Year
  Sex: Male
  Weight: 78.3 kg

DRUGS (7)
  1. MOUNJARO [Suspect]
     Active Substance: TIRZEPATIDE
     Indication: Type 2 diabetes mellitus
     Dates: start: 20231215, end: 20240411
  2. PREDNISONE [Concomitant]
     Active Substance: PREDNISONE
  3. BACLOFEN [Concomitant]
     Active Substance: BACLOFEN
  4. LOSARTAN [Concomitant]
     Active Substance: LOSARTAN
  5. VITAMINS [Concomitant]
     Active Substance: VITAMINS
  6. VITAMIN D3 [Concomitant]
     Active Substance: CHOLECALCIFEROL
  7. PROBIOTICS NOS [Concomitant]
     Active Substance: PROBIOTICS NOS

REACTIONS (6)
  - Weight decreased [None]
  - Muscle atrophy [None]
  - Spinal instability [None]
  - Heart rate abnormal [None]
  - Blood pressure abnormal [None]
  - Respiration abnormal [None]

NARRATIVE: CASE EVENT DATE: 20240312
